FAERS Safety Report 18777838 (Version 4)
Quarter: 2021Q4

REPORT INFORMATION
  Report Type: Spontaneous
  Country: US (occurrence: US)
  Receive Date: 20210122
  Receipt Date: 20211025
  Transmission Date: 20220303
  Serious: Yes (Other)
  Sender: FDA-Public Use
  Company Number: US-SEATTLE GENETICS-2020SGN03954

PATIENT
  Sex: Female

DRUGS (1)
  1. TUKYSA [Suspect]
     Active Substance: TUCATINIB
     Indication: Breast cancer female
     Dosage: 150 MG

REACTIONS (9)
  - Pneumonia [Recovered/Resolved]
  - Breath sounds abnormal [Recovered/Resolved]
  - Hyperaesthesia [Unknown]
  - Cognitive disorder [Unknown]
  - Abdominal discomfort [Unknown]
  - Fatigue [Unknown]
  - Adverse drug reaction [Recovered/Resolved]
  - Fracture [Recovering/Resolving]
  - Fall [Unknown]
